FAERS Safety Report 14934261 (Version 1)
Quarter: 2018Q2

REPORT INFORMATION
  Report Type: Spontaneous
  Country: FR (occurrence: FR)
  Receive Date: 20180524
  Receipt Date: 20180524
  Transmission Date: 20180711
  Serious: Yes (Death, Other)
  Sender: FDA-Public Use
  Company Number: FR-PFIZER INC-2018204489

PATIENT
  Age: 72 Year
  Sex: Male

DRUGS (13)
  1. LEVETIRACETAM. [Suspect]
     Active Substance: LEVETIRACETAM
     Dosage: 1000 MG, 1X/DAY (2 TABLETS OF 500 MG/DAY)
     Route: 048
     Dates: start: 20160507
  2. LACTULOSE. [Suspect]
     Active Substance: LACTULOSE
     Dosage: 2 DF, 1X/DAY (2/DAY)
     Route: 048
  3. PLAVIX [Suspect]
     Active Substance: CLOPIDOGREL BISULFATE
     Dosage: 1 DF, 1X/DAY
     Route: 048
     Dates: start: 20160429, end: 20160519
  4. TANGANIL [Suspect]
     Active Substance: ACETYLLEUCINE
     Dosage: 2 DF, 3X/DAY(2 TABLET 3 TIMES A DAY)
     Route: 048
     Dates: start: 20160429
  5. VASTAREL [Suspect]
     Active Substance: TRIMETAZIDINE DIHYDROCHLORIDE
     Dosage: 2 DF, 1X/DAY (2/DAY)
     Route: 048
  6. ATARAX [Suspect]
     Active Substance: HYDROXYZINE HYDROCHLORIDE
     Dosage: 1 DF, 1X/DAY
     Route: 048
  7. SPIRIVA [Suspect]
     Active Substance: TIOTROPIUM BROMIDE MONOHYDRATE
     Dosage: 1 DF, 1X/DAY (1/DAY)
     Route: 055
  8. PERINDOPRIL ARROW [Suspect]
     Active Substance: PERINDOPRIL
     Dosage: 1 DF, 1X/DAY (1/DAY)
     Route: 048
  9. PREGABALIN. [Suspect]
     Active Substance: PREGABALIN
     Dosage: 150 MG, 1X/DAY (2/DAY)
     Route: 048
     Dates: start: 20160507
  10. ESOMEPRAZOLE MAGNESIUM. [Suspect]
     Active Substance: ESOMEPRAZOLE MAGNESIUM
     Dosage: 40 MG, 1X/DAY (1 TIME/DAY)
     Route: 048
  11. LOVENOX [Suspect]
     Active Substance: ENOXAPARIN SODIUM
     Dosage: 4000 IU, 1X/DAY(1 INJ A 4000IU/D)
     Route: 058
     Dates: start: 20160511, end: 20160530
  12. PARACETAMOL [Suspect]
     Active Substance: ACETAMINOPHEN
     Dosage: UNKNOWN
     Route: 048
  13. SERETIDE [Suspect]
     Active Substance: FLUTICASONE PROPIONATE\SALMETEROL XINAFOATE
     Dosage: 2 DF, 1X/DAY (2/D)
     Route: 055

REACTIONS (3)
  - Thrombocytopenia [Not Recovered/Not Resolved]
  - Condition aggravated [Not Recovered/Not Resolved]
  - Malignant neoplasm progression [Fatal]

NARRATIVE: CASE EVENT DATE: 20160513
